FAERS Safety Report 16913894 (Version 1)
Quarter: 2019Q4

REPORT INFORMATION
  Report Type: Spontaneous
  Country: JP (occurrence: JP)
  Receive Date: 20191014
  Receipt Date: 20191014
  Transmission Date: 20200122
  Serious: Yes (Hospitalization)
  Sender: FDA-Public Use
  Company Number: JP-TEVA-2019-JP-1121765

PATIENT
  Age: 79 Year
  Sex: Female

DRUGS (3)
  1. PRAVASTATIN SODIUM. [Concomitant]
     Active Substance: PRAVASTATIN SODIUM
     Indication: HYPERLIPIDAEMIA
     Route: 065
  2. WARFARIN [Suspect]
     Active Substance: WARFARIN
     Indication: ATRIAL FIBRILLATION
     Route: 065
  3. CARVEDILOL. [Concomitant]
     Active Substance: CARVEDILOL
     Indication: HYPERTENSION
     Route: 065

REACTIONS (6)
  - Spinal cord haemorrhage [Recovering/Resolving]
  - Urinary retention [Recovered/Resolved]
  - Spinal subdural haematoma [Recovered/Resolved]
  - Paraesthesia [Recovering/Resolving]
  - Subdural haematoma [Recovered/Resolved]
  - Paraplegia [Recovering/Resolving]
